FAERS Safety Report 5584250-7 (Version None)
Quarter: 2008Q1

REPORT INFORMATION
  Report Type: 
  Country: None (occurrence: None)
  Receive Date: 20080108
  Receipt Date: 20080103
  Transmission Date: 20080703
  Serious: Yes (Other)
  Sender: FDA-Public Use
  Company Number: B0360208A

PATIENT
  Sex: Male

DRUGS (8)
  1. PAROXETINE HCL [Suspect]
     Route: 065
     Dates: start: 19980914
  2. DIAZEPAM [Concomitant]
     Dates: start: 19990706
  3. EFFEXOR [Concomitant]
     Dates: start: 19900901
  4. CIPRAMIL [Concomitant]
     Dates: start: 19991007
  5. FLUVOXAMINE MALEATE [Concomitant]
     Dates: start: 20000104
  6. PROZAC [Concomitant]
     Dates: start: 19950505
  7. LUSTRAL [Concomitant]
     Dates: start: 20010716
  8. ZISPIN [Concomitant]
     Dates: start: 19990923

REACTIONS (3)
  - AGGRESSION [None]
  - DRUG WITHDRAWAL SYNDROME [None]
  - SUICIDAL IDEATION [None]
